FAERS Safety Report 11009301 (Version 1)
Quarter: 2015Q2

REPORT INFORMATION
  Report Type: Spontaneous
  Country: AR (occurrence: AR)
  Receive Date: 20150410
  Receipt Date: 20150410
  Transmission Date: 20150821
  Serious: Yes (Death)
  Sender: FDA-Public Use
  Company Number: AR-PFIZER INC-2015119527

PATIENT
  Age: 65 Year
  Sex: Female

DRUGS (1)
  1. SUTENT [Suspect]
     Active Substance: SUNITINIB MALATE
     Indication: RHEUMATOID ARTHRITIS
     Dosage: UNK
     Dates: start: 20141209

REACTIONS (1)
  - Death [Fatal]

NARRATIVE: CASE EVENT DATE: 20150224
